FAERS Safety Report 7494864-5 (Version None)
Quarter: 2011Q2

REPORT INFORMATION
  Report Type: 
  Country: None (occurrence: None)
  Receive Date: 20110520
  Receipt Date: 20110516
  Transmission Date: 20111010
  Serious: Yes (Death, Other)
  Sender: FDA-Public Use
  Company Number: CA-ASTRAZENECA-2011SE29083

PATIENT

DRUGS (1)
  1. ATACAND [Suspect]
     Route: 048

REACTIONS (2)
  - RENAL IMPAIRMENT [None]
  - DEATH [None]
